FAERS Safety Report 7338691-8 (Version None)
Quarter: 2011Q1

REPORT INFORMATION
  Report Type: 
  Country: None (occurrence: None)
  Receive Date: 20110303
  Receipt Date: 20110303
  Transmission Date: 20110831
  Serious: Yes (Death)
  Sender: FDA-Public Use
  Company Number: None

PATIENT
  Age: 90 Year
  Sex: Male
  Weight: 72.5755 kg

DRUGS (1)
  1. ZYPREXA [Suspect]
     Indication: DEMENTIA
     Dosage: 5MG QID PO
     Route: 048
     Dates: start: 20110118, end: 20110123

REACTIONS (2)
  - ALTERED STATE OF CONSCIOUSNESS [None]
  - OFF LABEL USE [None]
